FAERS Safety Report 10255615 (Version 1)
Quarter: 2014Q2

REPORT INFORMATION
  Report Type: Spontaneous
  Country: US (occurrence: US)
  Receive Date: 20140624
  Receipt Date: 20140624
  Transmission Date: 20141212
  Serious: No
  Sender: FDA-Public Use
  Company Number: US-009507513-1405USA012301

PATIENT
  Age: 5 Year
  Sex: Male

DRUGS (2)
  1. CLARITIN ORAL SOLUTION [Suspect]
     Indication: FOOD ALLERGY
     Dosage: 5 MG, BID
     Route: 048
     Dates: end: 20121208
  2. CLARITIN ORAL SOLUTION [Suspect]
     Indication: HYPERSENSITIVITY

REACTIONS (3)
  - Drug withdrawal syndrome [Unknown]
  - Irritability [Unknown]
  - Overdose [Unknown]
